FAERS Safety Report 25567560 (Version 1)
Quarter: 2025Q3

REPORT INFORMATION
  Report Type: Spontaneous
  Country: US (occurrence: US)
  Receive Date: 20250716
  Receipt Date: 20250716
  Transmission Date: 20251020
  Serious: No
  Sender: FENNEC PHARMACEUTICALS
  Company Number: US-FENNEC PHARMACEUTICALS, INC.-2025FEN00051

PATIENT
  Age: 44 Year
  Sex: Female

DRUGS (7)
  1. PEDMARK [Suspect]
     Active Substance: SODIUM THIOSULFATE
     Dosage: 28 G, 1X/WEEK
     Route: 042
     Dates: start: 20250428, end: 20250428
  2. PEDMARK [Suspect]
     Active Substance: SODIUM THIOSULFATE
     Dosage: 28 G, 1X/WEEK
     Route: 042
     Dates: start: 20250527, end: 20250527
  3. ONDANSETRON [Concomitant]
     Active Substance: ONDANSETRON
     Route: 042
  4. METOCLOPRAMIDE [Concomitant]
     Active Substance: METOCLOPRAMIDE
     Route: 042
  5. LORAZEPAM [Concomitant]
     Active Substance: LORAZEPAM
     Route: 048
  6. REGLAN [Concomitant]
     Active Substance: METOCLOPRAMIDE HYDROCHLORIDE
     Route: 048
  7. CISPLATIN [Concomitant]
     Active Substance: CISPLATIN

REACTIONS (7)
  - Sneezing [Unknown]
  - Malaise [Unknown]
  - Cough [Unknown]
  - Chills [Unknown]
  - Fatigue [Unknown]
  - Feeling abnormal [Unknown]
  - Off label use [Unknown]

NARRATIVE: CASE EVENT DATE: 20250428
